FAERS Safety Report 7383420-5 (Version None)
Quarter: 2011Q1

REPORT INFORMATION
  Report Type: 
  Country: None (occurrence: None)
  Receive Date: 20110324
  Receipt Date: 20110324
  Transmission Date: 20110831
  Serious: Yes (Hospitalization)
  Sender: FDA-Public Use
  Company Number: None

PATIENT
  Sex: Female
  Weight: 98.9 kg

DRUGS (3)
  1. CARBOPLATIN [Suspect]
     Dosage: 600 MG
  2. TRASTUZUMAB [Suspect]
     Dosage: 400 MG
     Dates: end: 20110223
  3. DOCETAXEL [Suspect]
     Dosage: 150 MG

REACTIONS (6)
  - GASTROENTERITIS [None]
  - HYPOVOLAEMIA [None]
  - HAEMOGLOBIN DECREASED [None]
  - PYREXIA [None]
  - HYPOTENSION [None]
  - HYPOPHAGIA [None]
